FAERS Safety Report 12408642 (Version 1)
Quarter: 2016Q2

REPORT INFORMATION
  Report Type: Spontaneous
  Country: DE (occurrence: DE)
  Receive Date: 20160526
  Receipt Date: 20160526
  Transmission Date: 20160815
  Serious: Yes (Hospitalization, Other)
  Sender: FDA-Public Use
  Company Number: DE-TEVA-661458GER

PATIENT
  Age: 16 Year
  Sex: Female
  Weight: 68 kg

DRUGS (2)
  1. CLINDAMYCIN [Suspect]
     Active Substance: CLINDAMYCIN\CLINDAMYCIN PHOSPHATE
     Indication: TOOTH EXTRACTION
     Dosage: 900 MILLIGRAM DAILY;
     Route: 048
     Dates: start: 20160408, end: 20160414
  2. CLINDAMYCIN [Suspect]
     Active Substance: CLINDAMYCIN\CLINDAMYCIN PHOSPHATE
     Dosage: 1800 MILLIGRAM DAILY;
     Route: 048
     Dates: start: 20160414

REACTIONS (3)
  - Hypovolaemic shock [Unknown]
  - Renal failure [Unknown]
  - Drug eruption [Unknown]

NARRATIVE: CASE EVENT DATE: 20160413
